FAERS Safety Report 6826010-2 (Version None)
Quarter: 2010Q3

REPORT INFORMATION
  Report Type: 
  Country: None (occurrence: None)
  Receive Date: 20100706
  Receipt Date: 20100622
  Transmission Date: 20110219
  Serious: Yes (Hospitalization)
  Sender: FDA-Public Use
  Company Number: 012379

PATIENT
  Sex: Male
  Weight: 48.9 kg

DRUGS (4)
  1. CIMZIA [Suspect]
     Indication: CROHN'S DISEASE
     Dosage: SUBCUTANEOUS
     Route: 058
     Dates: start: 20091105
  2. BENTYL [Concomitant]
  3. PRILOSEC [Concomitant]
  4. PROBIOTICA [Concomitant]

REACTIONS (10)
  - ANAL FISTULA [None]
  - ARTHRALGIA [None]
  - BACK PAIN [None]
  - COLITIS [None]
  - COLONIC POLYP [None]
  - DYSURIA [None]
  - POUCHITIS [None]
  - URINE ODOUR ABNORMAL [None]
  - WOUND COMPLICATION [None]
  - WOUND HAEMORRHAGE [None]
